FAERS Safety Report 22649418 (Version 1)
Quarter: 2023Q2

REPORT INFORMATION
  Report Type: Spontaneous
  Country: US (occurrence: None)
  Receive Date: 20230626
  Receipt Date: 20230626
  Transmission Date: 20230721
  Serious: Yes (Death)
  Sender: FDA-Public Use
  Company Number: None

PATIENT
  Age: 78 Year
  Sex: Male

DRUGS (1)
  1. JAYPIRCA [Suspect]
     Active Substance: PIRTOBRUTINIB
     Dosage: 200MG DAILY ORAL
     Route: 048
     Dates: start: 202305, end: 202306

REACTIONS (1)
  - Death [None]

NARRATIVE: CASE EVENT DATE: 20230602
